FAERS Safety Report 8048207-9 (Version None)
Quarter: 2012Q1

REPORT INFORMATION
  Report Type: 
  Country: None (occurrence: None)
  Receive Date: 20120117
  Receipt Date: 20120109
  Transmission Date: 20120608
  Serious: Yes (Hospitalization)
  Sender: FDA-Public Use
  Company Number: US-BAYER-2011-040081

PATIENT
  Age: 26 Year
  Sex: Female
  Weight: 81.633 kg

DRUGS (2)
  1. YASMIN [Suspect]
     Indication: CONTRACEPTION
     Dosage: UNK
     Dates: start: 20030509, end: 20050701
  2. OMEPRAZOLE [Concomitant]
     Indication: GASTROOESOPHAGEAL REFLUX DISEASE
     Dosage: UNK UNK, QD
     Dates: start: 20060125, end: 20060131

REACTIONS (8)
  - CHOLELITHIASIS [None]
  - INJURY [None]
  - CHOLECYSTITIS [None]
  - GENERAL PHYSICAL HEALTH DETERIORATION [None]
  - EMOTIONAL DISTRESS [None]
  - ABDOMINAL PAIN [None]
  - PAIN [None]
  - ANXIETY [None]
